FAERS Safety Report 15498687 (Version 1)
Quarter: 2018Q4

REPORT INFORMATION
  Report Type: Spontaneous
  Country: US (occurrence: US)
  Receive Date: 20181005
  Receipt Date: 20181005
  Transmission Date: 20190205
  Serious: No
  Sender: FDA-Public Use
  Company Number: None

PATIENT
  Age: 71 Year
  Sex: Female

DRUGS (1)
  1. TYMLOS [Suspect]
     Active Substance: ABALOPARATIDE
     Indication: OSTEOPOROSIS
     Route: 058
     Dates: start: 20180719, end: 20180725

REACTIONS (7)
  - Headache [None]
  - Tachycardia [None]
  - Palpitations [None]
  - Dizziness [None]
  - Rhinorrhoea [None]
  - Eye pruritus [None]
  - Pain in jaw [None]

NARRATIVE: CASE EVENT DATE: 20180719
